FAERS Safety Report 7617093-0 (Version None)
Quarter: 2011Q3

REPORT INFORMATION
  Report Type: 
  Country: None (occurrence: None)
  Receive Date: 20110718
  Receipt Date: 20110530
  Transmission Date: 20111222
  Serious: Yes (Other)
  Sender: FDA-Public Use
  Company Number: FR-BAYER-2010-002318

PATIENT
  Age: 30 Year
  Sex: Female

DRUGS (2)
  1. MIRENA [Suspect]
     Indication: CONTRACEPTION
     Dosage: 20 ?G, CONT
     Route: 015
  2. MINOCIN [Concomitant]
     Indication: ACNE
     Dosage: 1 DF, QD
     Route: 048
     Dates: start: 20100930, end: 20101015

REACTIONS (2)
  - HEPATITIS [None]
  - ACNE [None]
